FAERS Safety Report 25587248 (Version 1)
Quarter: 2025Q3

REPORT INFORMATION
  Report Type: Spontaneous
  Country: GB (occurrence: GB)
  Receive Date: 20250721
  Receipt Date: 20250721
  Transmission Date: 20251020
  Serious: Yes (Death, Hospitalization, Other)
  Sender: MYLAN
  Company Number: None

PATIENT
  Age: 85 Year
  Sex: Male
  Weight: 79 kg

DRUGS (60)
  1. APIXABAN [Suspect]
     Active Substance: APIXABAN
     Indication: Atrial fibrillation
     Dosage: 2.5 MILLIGRAM, BID
     Dates: end: 20250321
  2. APIXABAN [Suspect]
     Active Substance: APIXABAN
     Dosage: 2.5 MILLIGRAM, BID
     Route: 048
     Dates: end: 20250321
  3. APIXABAN [Suspect]
     Active Substance: APIXABAN
     Dosage: 2.5 MILLIGRAM, BID
     Route: 048
     Dates: end: 20250321
  4. APIXABAN [Suspect]
     Active Substance: APIXABAN
     Dosage: 2.5 MILLIGRAM, BID
     Dates: end: 20250321
  5. AMLODIPINE [Concomitant]
     Active Substance: AMLODIPINE BESYLATE
     Dosage: 1 DOSAGE FORM, AM (ONE TO BE TAKEN EACH DAY IN MORNING)
  6. AMLODIPINE [Concomitant]
     Active Substance: AMLODIPINE BESYLATE
     Dosage: 1 DOSAGE FORM, AM (ONE TO BE TAKEN EACH DAY IN MORNING)
     Route: 048
  7. AMLODIPINE [Concomitant]
     Active Substance: AMLODIPINE BESYLATE
     Dosage: 1 DOSAGE FORM, AM (ONE TO BE TAKEN EACH DAY IN MORNING)
     Route: 048
  8. AMLODIPINE [Concomitant]
     Active Substance: AMLODIPINE BESYLATE
     Dosage: 1 DOSAGE FORM, AM (ONE TO BE TAKEN EACH DAY IN MORNING)
  9. LISINOPRIL [Concomitant]
     Active Substance: LISINOPRIL
     Dosage: 1 DOSAGE FORM, AM
  10. LISINOPRIL [Concomitant]
     Active Substance: LISINOPRIL
     Dosage: 1 DOSAGE FORM, AM
     Route: 048
  11. LISINOPRIL [Concomitant]
     Active Substance: LISINOPRIL
     Dosage: 1 DOSAGE FORM, AM
     Route: 048
  12. LISINOPRIL [Concomitant]
     Active Substance: LISINOPRIL
     Dosage: 1 DOSAGE FORM, AM
  13. DOXAZOSIN [Concomitant]
     Active Substance: DOXAZOSIN MESYLATE
     Dosage: 1 DOSAGE FORM, PM
     Dates: end: 20250415
  14. DOXAZOSIN [Concomitant]
     Active Substance: DOXAZOSIN MESYLATE
     Dosage: 1 DOSAGE FORM, PM
     Route: 048
     Dates: end: 20250415
  15. DOXAZOSIN [Concomitant]
     Active Substance: DOXAZOSIN MESYLATE
     Dosage: 1 DOSAGE FORM, PM
     Route: 048
     Dates: end: 20250415
  16. DOXAZOSIN [Concomitant]
     Active Substance: DOXAZOSIN MESYLATE
     Dosage: 1 DOSAGE FORM, PM
     Dates: end: 20250415
  17. BRINZOLAMIDE [Concomitant]
     Active Substance: BRINZOLAMIDE
     Dosage: 1 DOSAGE FORM, BID (INSTILL ONE DROP INTO THE RIGHT EYE TWICE A DAY)
  18. BRINZOLAMIDE [Concomitant]
     Active Substance: BRINZOLAMIDE
     Dosage: 1 DOSAGE FORM, BID (INSTILL ONE DROP INTO THE RIGHT EYE TWICE A DAY)
     Route: 047
  19. BRINZOLAMIDE [Concomitant]
     Active Substance: BRINZOLAMIDE
     Dosage: 1 DOSAGE FORM, BID (INSTILL ONE DROP INTO THE RIGHT EYE TWICE A DAY)
     Route: 047
  20. BRINZOLAMIDE [Concomitant]
     Active Substance: BRINZOLAMIDE
     Dosage: 1 DOSAGE FORM, BID (INSTILL ONE DROP INTO THE RIGHT EYE TWICE A DAY)
  21. METHOXY POLYETHYLENE GLYCOL-EPOETIN BETA [Concomitant]
     Active Substance: METHOXY POLYETHYLENE GLYCOL-EPOETIN BETA
     Dosage: UNK UNK, Q28D (PRE-FILLED SYRINGES (AS DIRECTED ONCE EVERY 28 DAYS))
     Dates: end: 20250401
  22. METHOXY POLYETHYLENE GLYCOL-EPOETIN BETA [Concomitant]
     Active Substance: METHOXY POLYETHYLENE GLYCOL-EPOETIN BETA
     Dosage: UNK UNK, Q28D (PRE-FILLED SYRINGES (AS DIRECTED ONCE EVERY 28 DAYS))
     Route: 058
     Dates: end: 20250401
  23. METHOXY POLYETHYLENE GLYCOL-EPOETIN BETA [Concomitant]
     Active Substance: METHOXY POLYETHYLENE GLYCOL-EPOETIN BETA
     Dosage: UNK UNK, Q28D (PRE-FILLED SYRINGES (AS DIRECTED ONCE EVERY 28 DAYS))
     Route: 058
     Dates: end: 20250401
  24. METHOXY POLYETHYLENE GLYCOL-EPOETIN BETA [Concomitant]
     Active Substance: METHOXY POLYETHYLENE GLYCOL-EPOETIN BETA
     Dosage: UNK UNK, Q28D (PRE-FILLED SYRINGES (AS DIRECTED ONCE EVERY 28 DAYS))
     Dates: end: 20250401
  25. CHOLECALCIFEROL [Concomitant]
     Active Substance: CHOLECALCIFEROL
     Dosage: 1 DOSAGE FORM, QD (ONE TO BE TAKEN EACH DAY (VITAMIN D))
     Dates: end: 20250401
  26. CHOLECALCIFEROL [Concomitant]
     Active Substance: CHOLECALCIFEROL
     Dosage: 1 DOSAGE FORM, QD (ONE TO BE TAKEN EACH DAY (VITAMIN D))
     Route: 048
     Dates: end: 20250401
  27. CHOLECALCIFEROL [Concomitant]
     Active Substance: CHOLECALCIFEROL
     Dosage: 1 DOSAGE FORM, QD (ONE TO BE TAKEN EACH DAY (VITAMIN D))
     Route: 048
     Dates: end: 20250401
  28. CHOLECALCIFEROL [Concomitant]
     Active Substance: CHOLECALCIFEROL
     Dosage: 1 DOSAGE FORM, QD (ONE TO BE TAKEN EACH DAY (VITAMIN D))
     Dates: end: 20250401
  29. FUROSEMIDE [Concomitant]
     Active Substance: FUROSEMIDE
     Dosage: 1 DOSAGE FORM, AM (ONE TO BE TAKEN EACH MORNING)
  30. FUROSEMIDE [Concomitant]
     Active Substance: FUROSEMIDE
     Dosage: 1 DOSAGE FORM, AM (ONE TO BE TAKEN EACH MORNING)
     Route: 048
  31. FUROSEMIDE [Concomitant]
     Active Substance: FUROSEMIDE
     Dosage: 1 DOSAGE FORM, AM (ONE TO BE TAKEN EACH MORNING)
     Route: 048
  32. FUROSEMIDE [Concomitant]
     Active Substance: FUROSEMIDE
     Dosage: 1 DOSAGE FORM, AM (ONE TO BE TAKEN EACH MORNING)
  33. ATROPINE [Concomitant]
     Active Substance: ATROPINE
     Dosage: 1 DOSAGE FORM, BID (0.5ML UNIT DOSE PRESERVATIVE FREE - INSTILL ONE DROP INTO THE RIGHT EYE TWICE A DAY)
  34. ATROPINE [Concomitant]
     Active Substance: ATROPINE
     Dosage: 1 DOSAGE FORM, BID (0.5ML UNIT DOSE PRESERVATIVE FREE - INSTILL ONE DROP INTO THE RIGHT EYE TWICE A DAY)
     Route: 047
  35. ATROPINE [Concomitant]
     Active Substance: ATROPINE
     Dosage: 1 DOSAGE FORM, BID (0.5ML UNIT DOSE PRESERVATIVE FREE - INSTILL ONE DROP INTO THE RIGHT EYE TWICE A DAY)
     Route: 047
  36. ATROPINE [Concomitant]
     Active Substance: ATROPINE
     Dosage: 1 DOSAGE FORM, BID (0.5ML UNIT DOSE PRESERVATIVE FREE - INSTILL ONE DROP INTO THE RIGHT EYE TWICE A DAY)
  37. PREDNISOLONE [Concomitant]
     Active Substance: PREDNISOLONE
     Dosage: 1 DOSAGE FORM, BID (INSTILL ONE DROP INTO THE RIGHT EYE TWICE A DAY)
  38. PREDNISOLONE [Concomitant]
     Active Substance: PREDNISOLONE
     Dosage: 1 DOSAGE FORM, BID (INSTILL ONE DROP INTO THE RIGHT EYE TWICE A DAY)
     Route: 047
  39. PREDNISOLONE [Concomitant]
     Active Substance: PREDNISOLONE
     Dosage: 1 DOSAGE FORM, BID (INSTILL ONE DROP INTO THE RIGHT EYE TWICE A DAY)
     Route: 047
  40. PREDNISOLONE [Concomitant]
     Active Substance: PREDNISOLONE
     Dosage: 1 DOSAGE FORM, BID (INSTILL ONE DROP INTO THE RIGHT EYE TWICE A DAY)
  41. OCTAPLEX [Concomitant]
     Active Substance: COAGULATION FACTOR IX HUMAN\COAGULATION FACTOR VII HUMAN\COAGULATION FACTOR X HUMAN\PROTEIN C\PROTEI
  42. OCTAPLEX [Concomitant]
     Active Substance: COAGULATION FACTOR IX HUMAN\COAGULATION FACTOR VII HUMAN\COAGULATION FACTOR X HUMAN\PROTEIN C\PROTEI
     Route: 065
  43. OCTAPLEX [Concomitant]
     Active Substance: COAGULATION FACTOR IX HUMAN\COAGULATION FACTOR VII HUMAN\COAGULATION FACTOR X HUMAN\PROTEIN C\PROTEI
     Route: 065
  44. OCTAPLEX [Concomitant]
     Active Substance: COAGULATION FACTOR IX HUMAN\COAGULATION FACTOR VII HUMAN\COAGULATION FACTOR X HUMAN\PROTEIN C\PROTEI
  45. SODIUM BICARBONATE [Concomitant]
     Active Substance: SODIUM BICARBONATE
     Dosage: 1 DOSAGE FORM, BID (TAKE ONE CAPSULE TWICE A DAY - AS PER NEPHROLOGY)
     Dates: start: 20250317
  46. SODIUM BICARBONATE [Concomitant]
     Active Substance: SODIUM BICARBONATE
     Dosage: 1 DOSAGE FORM, BID (TAKE ONE CAPSULE TWICE A DAY - AS PER NEPHROLOGY)
     Route: 048
     Dates: start: 20250317
  47. SODIUM BICARBONATE [Concomitant]
     Active Substance: SODIUM BICARBONATE
     Dosage: 1 DOSAGE FORM, BID (TAKE ONE CAPSULE TWICE A DAY - AS PER NEPHROLOGY)
     Route: 048
     Dates: start: 20250317
  48. SODIUM BICARBONATE [Concomitant]
     Active Substance: SODIUM BICARBONATE
     Dosage: 1 DOSAGE FORM, BID (TAKE ONE CAPSULE TWICE A DAY - AS PER NEPHROLOGY)
     Dates: start: 20250317
  49. TIMOLOL [Concomitant]
     Active Substance: TIMOLOL
     Dosage: 1 DOSAGE FORM, BID (INSTILL ONE DROP INTO THE RIGHT EYE TWICE A DAY)
  50. TIMOLOL [Concomitant]
     Active Substance: TIMOLOL
     Dosage: 1 DOSAGE FORM, BID (INSTILL ONE DROP INTO THE RIGHT EYE TWICE A DAY)
     Route: 047
  51. TIMOLOL [Concomitant]
     Active Substance: TIMOLOL
     Dosage: 1 DOSAGE FORM, BID (INSTILL ONE DROP INTO THE RIGHT EYE TWICE A DAY)
     Route: 047
  52. TIMOLOL [Concomitant]
     Active Substance: TIMOLOL
     Dosage: 1 DOSAGE FORM, BID (INSTILL ONE DROP INTO THE RIGHT EYE TWICE A DAY)
  53. CHOLECALCIFEROL [Concomitant]
     Active Substance: CHOLECALCIFEROL
     Dosage: 1 DOSAGE FORM, AM (TAKE ONE CAPSULE IN THE MORNING)
  54. CHOLECALCIFEROL [Concomitant]
     Active Substance: CHOLECALCIFEROL
     Dosage: 1 DOSAGE FORM, AM (TAKE ONE CAPSULE IN THE MORNING)
     Route: 048
  55. CHOLECALCIFEROL [Concomitant]
     Active Substance: CHOLECALCIFEROL
     Dosage: 1 DOSAGE FORM, AM (TAKE ONE CAPSULE IN THE MORNING)
     Route: 048
  56. CHOLECALCIFEROL [Concomitant]
     Active Substance: CHOLECALCIFEROL
     Dosage: 1 DOSAGE FORM, AM (TAKE ONE CAPSULE IN THE MORNING)
  57. SODIUM BICARBONATE [Concomitant]
     Active Substance: SODIUM BICARBONATE
     Dosage: 2 DOSAGE FORM, BID (TAKE TWO CAPSULES TWICE A DAY)
  58. SODIUM BICARBONATE [Concomitant]
     Active Substance: SODIUM BICARBONATE
     Dosage: 2 DOSAGE FORM, BID (TAKE TWO CAPSULES TWICE A DAY)
     Route: 048
  59. SODIUM BICARBONATE [Concomitant]
     Active Substance: SODIUM BICARBONATE
     Dosage: 2 DOSAGE FORM, BID (TAKE TWO CAPSULES TWICE A DAY)
     Route: 048
  60. SODIUM BICARBONATE [Concomitant]
     Active Substance: SODIUM BICARBONATE
     Dosage: 2 DOSAGE FORM, BID (TAKE TWO CAPSULES TWICE A DAY)

REACTIONS (3)
  - Haematemesis [Fatal]
  - Subdural haematoma [Unknown]
  - Head injury [Unknown]

NARRATIVE: CASE EVENT DATE: 20250421
